FAERS Safety Report 18161120 (Version 1)
Quarter: 2020Q3

REPORT INFORMATION
  Report Type: Spontaneous
  Country: US (occurrence: US)
  Receive Date: 20200817
  Receipt Date: 20200817
  Transmission Date: 20201103
  Serious: Yes (Other)
  Sender: FDA-Public Use
  Company Number: None

PATIENT
  Age: 44 Year
  Sex: Female
  Weight: 67.5 kg

DRUGS (15)
  1. STEROID [Concomitant]
     Active Substance: UNSPECIFIED INGREDIENT
  2. ROPIVACAINE 0.5% PRESERVATIVE?FREE [Suspect]
     Active Substance: ROPIVACAINE HYDROCHLORIDE
     Indication: ANAESTHESIA
     Dosage: ?          OTHER FREQUENCY:PERIOPERATIVE;OTHER ROUTE:AROUND BRACHIAL PLEXUS?
     Dates: start: 20200707
  3. DEXAMETHASONE. [Concomitant]
     Active Substance: DEXAMETHASONE
  4. VITAMIN D3 [Concomitant]
     Active Substance: CHOLECALCIFEROL
  5. ACETAMINOPHEN. [Concomitant]
     Active Substance: ACETAMINOPHEN
  6. MIDAZOLAM. [Concomitant]
     Active Substance: MIDAZOLAM
  7. PROPOFOL. [Concomitant]
     Active Substance: PROPOFOL
  8. AMPICILLIN?SULBACTAM (UNASYN) [Concomitant]
  9. RABIES IMMUNE GLOBULIN TETANUS TOXOID?REDUCED DIPTH TOXOID?ACELL PERTUSSIS (BOOSTRIX, TDAP) [Concomitant]
  10. IMOVAX [Concomitant]
     Active Substance: RABIES VACCINE\RABIES VIRUS STRAIN PM-1503-3M ANTIGEN (PROPIOLACTONE INACTIVATED)
  11. LEVOTHYROXIN [Concomitant]
     Active Substance: LEVOTHYROXINE
  12. LEVONORGESTRYL/ETHINYL ESTRADIOL [Concomitant]
  13. FENTANYL. [Concomitant]
     Active Substance: FENTANYL
  14. ANTIBIOTIC [Concomitant]
     Active Substance: UNSPECIFIED INGREDIENT
  15. OPIOID PAIN RELIEVER [Concomitant]

REACTIONS (2)
  - Pain [None]
  - Neuralgia [None]

NARRATIVE: CASE EVENT DATE: 20200707
